FAERS Safety Report 10165204 (Version 1)
Quarter: 2014Q2

REPORT INFORMATION
  Report Type: Spontaneous
  Country: US (occurrence: US)
  Receive Date: 20140510
  Receipt Date: 20140510
  Transmission Date: 20141212
  Serious: No
  Sender: FDA-Public Use
  Company Number: US-BRISTOL-MYERS SQUIBB COMPANY-19764984

PATIENT
  Age: 66 Year
  Sex: Female
  Weight: 79.36 kg

DRUGS (3)
  1. BYDUREON [Suspect]
     Indication: TYPE 2 DIABETES MELLITUS
     Dosage: LAST DOSE:27OCT2013.
     Dates: start: 201308
  2. GLIMEPIRIDE [Suspect]
  3. LEVEMIR [Suspect]
     Dosage: 1DF:2 UNITS
     Dates: start: 2013, end: 2013

REACTIONS (5)
  - Blood glucose decreased [Recovering/Resolving]
  - Decreased appetite [Not Recovered/Not Resolved]
  - Weight decreased [Unknown]
  - Nervousness [Not Recovered/Not Resolved]
  - Insomnia [Not Recovered/Not Resolved]
